FAERS Safety Report 9740756 (Version 1)
Quarter: 2013Q4

REPORT INFORMATION
  Report Type: Spontaneous
  Country: US (occurrence: US)
  Receive Date: 20131209
  Receipt Date: 20131209
  Transmission Date: 20140711
  Serious: Yes (Death)
  Sender: FDA-Public Use
  Company Number: US-PFIZER INC-2013349521

PATIENT
  Age: 75 Year
  Sex: Male

DRUGS (2)
  1. INLYTA [Suspect]
     Indication: RENAL CANCER
     Dosage: 6 MG, UNK (5 MG TABLET / 1 MG TABLET)
  2. INLYTA [Suspect]
     Dosage: 6 MG, UNK (5 MG TABLET / 1 MG TABLET)

REACTIONS (1)
  - Death [Fatal]
